FAERS Safety Report 7941450-6 (Version None)
Quarter: 2011Q4

REPORT INFORMATION
  Report Type: 
  Country: None (occurrence: None)
  Receive Date: 20111128
  Receipt Date: 20111117
  Transmission Date: 20120403
  Serious: Yes (Other)
  Sender: FDA-Public Use
  Company Number: US-BAYER-2011-111448

PATIENT
  Age: 45 Year
  Sex: Female

DRUGS (2)
  1. DROSPIRENONE AND ETHINYL ESTRADIOL [Suspect]
     Dosage: UNK
     Dates: start: 20080701, end: 20100501
  2. YASMIN [Suspect]
     Dosage: UNK
     Dates: start: 20020801, end: 20080601

REACTIONS (2)
  - INJURY [None]
  - AORTIC ANEURYSM [None]
